FAERS Safety Report 7209860-2 (Version None)
Quarter: 2011Q1

REPORT INFORMATION
  Report Type: 
  Country: None (occurrence: None)
  Receive Date: 20110104
  Receipt Date: 20101231
  Transmission Date: 20110831
  Serious: Yes (Death)
  Sender: FDA-Public Use
  Company Number: US-ASTRAZENECA-2011SE00082

PATIENT
  Age: 35 Year
  Sex: Male

DRUGS (6)
  1. ACETAMINOPHEN [Suspect]
     Route: 048
  2. COLCHICINE [Suspect]
     Route: 048
  3. CITALOPRAM [Suspect]
     Route: 048
  4. ALLOPURINOL [Suspect]
     Route: 048
  5. LISINOPRIL [Suspect]
     Route: 048
  6. AMLODIPINE [Suspect]
     Route: 048

REACTIONS (13)
  - COMPLETED SUICIDE [None]
  - ELECTROCARDIOGRAM QRS COMPLEX PROLONGED [None]
  - HYPOTENSION [None]
  - BACK PAIN [None]
  - BRADYCARDIA [None]
  - RENAL FAILURE [None]
  - HYPERGLYCAEMIA [None]
  - HYPOXIA [None]
  - RHABDOMYOLYSIS [None]
  - ATRIOVENTRICULAR BLOCK [None]
  - SHOCK [None]
  - MULTIPLE DRUG OVERDOSE [None]
  - TOXICITY TO VARIOUS AGENTS [None]
